FAERS Safety Report 4611911-6 (Version None)
Quarter: 2005Q1

REPORT INFORMATION
  Report Type: 
  Country: None (occurrence: None)
  Receive Date: 20050308
  Receipt Date: 20050105
  Transmission Date: 20050727
  Serious: Yes (Disabling)
  Sender: FDA-Public Use
  Company Number: 2005UW00318

PATIENT
  Age: 46 Year
  Sex: Female

DRUGS (7)
  1. CRESTOR [Suspect]
     Dosage: 10 MG DAILY PO
     Route: 048
  2. XANAX [Concomitant]
  3. ZELNORM [Concomitant]
  4. VITAMINS NOS [Concomitant]
  5. MINERALS NOS [Concomitant]
  6. CALCIUM GLUCONATE [Concomitant]
  7. FISH OIL [Concomitant]

REACTIONS (1)
  - OEDEMA PERIPHERAL [None]
